FAERS Safety Report 25304347 (Version 1)
Quarter: 2025Q2

REPORT INFORMATION
  Report Type: Spontaneous
  Country: IR (occurrence: IR)
  Receive Date: 20250513
  Receipt Date: 20250513
  Transmission Date: 20250717
  Serious: Yes (Death, Life-Threatening, Hospitalization, Other)
  Sender: ALKEM
  Company Number: IR-ALKEM LABORATORIES LIMITED-US-ALKEM-2025-04450

PATIENT
  Age: 21 Year
  Sex: Female

DRUGS (1)
  1. METFORMIN HYDROCHLORIDE [Suspect]
     Active Substance: METFORMIN HYDROCHLORIDE
     Indication: Product used for unknown indication
     Route: 048

REACTIONS (12)
  - Bradyarrhythmia [Fatal]
  - Hypovolaemic shock [Unknown]
  - Seizure [Unknown]
  - Loss of consciousness [Unknown]
  - Arrhythmia [Unknown]
  - Haemodynamic instability [Unknown]
  - Metabolic acidosis [Unknown]
  - Intentional overdose [Fatal]
  - Toxicity to various agents [Fatal]
  - Hypoglycaemia [Recovered/Resolved]
  - Nausea [Unknown]
  - Vomiting [Unknown]
